FAERS Safety Report 19257147 (Version 2)
Quarter: 2021Q2

REPORT INFORMATION
  Report Type: Spontaneous
  Country: BE (occurrence: BE)
  Receive Date: 20210513
  Receipt Date: 20210621
  Transmission Date: 20210717
  Serious: Yes (Other)
  Sender: FDA-Public Use
  Company Number: BE-ABBVIE-21K-013-3904198-00

PATIENT
  Age: 38 Year
  Sex: Male
  Weight: 71 kg

DRUGS (9)
  1. ZITROMAX [Concomitant]
     Active Substance: AZITHROMYCIN
     Indication: GRAFT VERSUS HOST DISEASE
     Route: 048
     Dates: start: 20160811
  2. SOFTACOR [Concomitant]
     Indication: GRAFT VERSUS HOST DISEASE
     Dosage: 1 DROP, PRN
     Route: 061
     Dates: start: 20200806
  3. EUSAPRIM [Concomitant]
     Active Substance: SULFAMETHOXAZOLE\TRIMETHOPRIM
     Indication: GRAFT VERSUS HOST DISEASE
     Route: 048
     Dates: start: 20151109
  4. MONTELUKAST [Concomitant]
     Active Substance: MONTELUKAST SODIUM
     Indication: GRAFT VERSUS HOST DISEASE
     Route: 048
     Dates: start: 20151026
  5. HYABAK [HYALURONATE SODIUM] [Concomitant]
     Indication: GRAFT VERSUS HOST DISEASE
     Dosage: 1 DROP, PRN
     Route: 061
     Dates: start: 20160907
  6. CIALIS [Concomitant]
     Active Substance: TADALAFIL
     Indication: ERECTILE DYSFUNCTION
     Route: 048
     Dates: start: 20171114
  7. MEDROL [Concomitant]
     Active Substance: METHYLPREDNISOLONE
     Indication: GRAFT VERSUS HOST DISEASE
     Route: 048
     Dates: start: 20190725
  8. SEROXAT [Concomitant]
     Active Substance: PAROXETINE HYDROCHLORIDE
     Indication: DEPRESSION
     Route: 048
     Dates: start: 20180705
  9. IMBRUVICA [Suspect]
     Active Substance: IBRUTINIB
     Indication: GRAFT VERSUS HOST DISEASE
     Route: 048
     Dates: start: 20210303, end: 20210429

REACTIONS (3)
  - Off label use [Unknown]
  - Product use in unapproved indication [Unknown]
  - Drug ineffective for unapproved indication [Unknown]

NARRATIVE: CASE EVENT DATE: 2021
